FAERS Safety Report 7224554-5 (Version None)
Quarter: 2011Q1

REPORT INFORMATION
  Report Type: 
  Country: None (occurrence: None)
  Receive Date: 20110113
  Receipt Date: 20101008
  Transmission Date: 20110831
  Serious: No
  Sender: FDA-Public Use
  Company Number: US-BAYER-201022397BCC

PATIENT
  Sex: Female
  Weight: 55.455 kg

DRUGS (1)
  1. ALEVE [Suspect]

REACTIONS (4)
  - HYPERSENSITIVITY [None]
  - PRURITUS [None]
  - URTICARIA [None]
  - ABDOMINAL PAIN UPPER [None]
